FAERS Safety Report 15708783 (Version 1)
Quarter: 2018Q4

REPORT INFORMATION
  Report Type: Spontaneous
  Country: US (occurrence: US)
  Receive Date: 20181211
  Receipt Date: 20181211
  Transmission Date: 20190205
  Serious: No
  Sender: FDA-Public Use
  Company Number: US-ASTRAZENECA-2018SF54624

PATIENT
  Age: 29898 Day
  Sex: Female
  Weight: 92.5 kg

DRUGS (5)
  1. BEVESPI AEROSPHERE [Suspect]
     Active Substance: FORMOTEROL FUMARATE\GLYCOPYRROLATE
     Indication: PRODUCTIVE COUGH
     Dosage: 9MCG/4.8MCG, 2 PUFFS TWICE DAILY
     Route: 055
     Dates: start: 20181115, end: 20181121
  2. BEVESPI AEROSPHERE [Suspect]
     Active Substance: FORMOTEROL FUMARATE\GLYCOPYRROLATE
     Indication: COUGH
     Dosage: 9MCG/4.8MCG, 2 PUFFS TWICE DAILY
     Route: 055
     Dates: start: 20181115, end: 20181121
  3. VITAMINS NOS [Concomitant]
     Active Substance: VITAMINS
  4. CHOLESTEROL [Concomitant]
     Active Substance: CHOLESTEROL
  5. MINERALS NOS [Concomitant]
     Active Substance: MINERALS

REACTIONS (8)
  - Arthralgia [Recovered/Resolved]
  - Product use in unapproved indication [Not Recovered/Not Resolved]
  - Joint injury [Unknown]
  - Knee deformity [Recovered/Resolved]
  - Thermal burn [Not Recovered/Not Resolved]
  - Knee deformity [Not Recovered/Not Resolved]
  - Off label use [Not Recovered/Not Resolved]
  - Drug ineffective [Not Recovered/Not Resolved]

NARRATIVE: CASE EVENT DATE: 20181115
